FAERS Safety Report 6857740-4 (Version None)
Quarter: 2010Q3

REPORT INFORMATION
  Report Type: 
  Country: None (occurrence: None)
  Receive Date: 20100719
  Receipt Date: 20080127
  Transmission Date: 20110219
  Serious: No
  Sender: FDA-Public Use
  Company Number: US-PFIZER INC-2008009790

PATIENT
  Sex: Female
  Weight: 54.4 kg

DRUGS (6)
  1. CHANTIX [Suspect]
     Indication: SMOKING CESSATION THERAPY
     Route: 048
     Dates: start: 20080103
  2. LEXAPRO [Concomitant]
  3. LITHIUM CARBONATE [Concomitant]
  4. LUNESTA [Concomitant]
  5. SYNTHROID [Concomitant]
  6. PROPRANOLOL [Concomitant]

REACTIONS (3)
  - DEPRESSION [None]
  - NAUSEA [None]
  - SOMNOLENCE [None]
